FAERS Safety Report 22840704 (Version 5)
Quarter: 2023Q4

REPORT INFORMATION
  Report Type: Report from Study
  Country: US (occurrence: US)
  Receive Date: 20230819
  Receipt Date: 20231206
  Transmission Date: 20240110
  Serious: No
  Sender: FDA-Public Use
  Company Number: US-002147023-NVSC2023US179298

PATIENT
  Sex: Female

DRUGS (1)
  1. KISQALI [Suspect]
     Active Substance: RIBOCICLIB
     Indication: Product used for unknown indication
     Dosage: UNK
     Route: 048

REACTIONS (8)
  - Dysphagia [Unknown]
  - Feeding disorder [Unknown]
  - Pharyngeal swelling [Unknown]
  - Vitreous floaters [Unknown]
  - Dizziness [Unknown]
  - Decreased appetite [Recovered/Resolved]
  - Dry skin [Unknown]
  - Urticaria [Unknown]
